FAERS Safety Report 6088972-3 (Version None)
Quarter: 2009Q1

REPORT INFORMATION
  Report Type: 
  Country: None (occurrence: None)
  Receive Date: 20090219
  Receipt Date: 20090205
  Transmission Date: 20090719
  Serious: Yes (Hospitalization)
  Sender: FDA-Public Use
  Company Number: 09P-229-0496953-00

PATIENT
  Age: 5 Month
  Sex: Male

DRUGS (4)
  1. SYNAGIS [Suspect]
     Indication: ANTIVIRAL PROPHYLAXIS
     Dates: start: 20081126, end: 20081126
  2. SYNAGIS [Suspect]
     Indication: ATRIAL SEPTAL DEFECT
     Dates: start: 20081126, end: 20081126
  3. SYNAGIS [Suspect]
     Indication: HEART DISEASE CONGENITAL
     Dates: start: 20081126, end: 20081126
  4. SYNAGIS [Suspect]
     Indication: VENTRICULAR SEPTAL DEFECT
     Dates: start: 20081126, end: 20081126

REACTIONS (5)
  - BRONCHIOLITIS [None]
  - PNEUMONIA [None]
  - PYREXIA [None]
  - RESPIRATORY RATE INCREASED [None]
  - RESPIRATORY SYNCYTIAL VIRUS INFECTION [None]
